FAERS Safety Report 8941099 (Version 1)
Quarter: 2012Q4

REPORT INFORMATION
  Report Type: 
  Country: BR (occurrence: BR)
  Receive Date: 20121203
  Receipt Date: 20121203
  Transmission Date: 20130627
  Serious: Yes (Life-Threatening, Hospitalization)
  Sender: FDA-Public Use
  Company Number: BR-ROCHE-1162417

PATIENT
  Age: 51 None
  Sex: Male
  Weight: 72 kg

DRUGS (6)
  1. XOLAIR [Suspect]
     Indication: ASTHMA
     Dosage: route: inhalation
     Route: 050
     Dates: start: 2009, end: 2010
  2. FORASEQ (BRAZIL) [Concomitant]
     Dosage: 12/400 ug
     Route: 065
     Dates: start: 201205
  3. CARDIZEM [Concomitant]
     Route: 065
     Dates: start: 201201
  4. OMEPRAZOL [Concomitant]
  5. BROMOPRIDA [Concomitant]
  6. RIVOTRIL [Concomitant]

REACTIONS (5)
  - Cardiopulmonary failure [Unknown]
  - Respiratory disorder [Not Recovered/Not Resolved]
  - Urinary tract infection [Unknown]
  - No therapeutic response [Unknown]
  - Incorrect route of drug administration [Unknown]
